FAERS Safety Report 6952285-5 (Version None)
Quarter: 2010Q3

REPORT INFORMATION
  Report Type: 
  Country: None (occurrence: None)
  Receive Date: 20100829
  Receipt Date: 20100428
  Transmission Date: 20110219
  Serious: No
  Sender: FDA-Public Use
  Company Number: US-ABBOTT-10P-163-0641372-00

PATIENT
  Sex: Male

DRUGS (3)
  1. NIASPAN [Suspect]
     Indication: BLOOD CHOLESTEROL INCREASED
     Dosage: 500MG AT BEDTIME
     Route: 048
     Dates: start: 20080101
  2. NIASPAN [Suspect]
     Dosage: 2-500MG TABLETS AT BEDTIME
     Route: 048
  3. NIASPAN [Suspect]
     Dosage: 3-500MG TABLETS AT BEDTIME
     Route: 048

REACTIONS (2)
  - FEELING HOT [None]
  - FLUSHING [None]
